FAERS Safety Report 16642462 (Version 1)
Quarter: 2019Q3

REPORT INFORMATION
  Report Type: Report from Study
  Country: US (occurrence: US)
  Receive Date: 20190729
  Receipt Date: 20190729
  Transmission Date: 20191004
  Serious: Yes (Other)
  Sender: FDA-Public Use
  Company Number: US-SEBELA IRELAND LIMITED-2019SEB00185

PATIENT
  Age: 38 Year
  Sex: Male
  Weight: 68.03 kg

DRUGS (5)
  1. COLAZAL [Concomitant]
     Active Substance: BALSALAZIDE DISODIUM
     Dosage: 750 MG, 4X/DAY
     Route: 048
     Dates: start: 2012
  2. AZATHIOPRINE. [Suspect]
     Active Substance: AZATHIOPRINE
     Indication: COLITIS ULCERATIVE
     Dosage: 50 MG, 1X/DAY
     Dates: start: 20140808, end: 201802
  3. HUMIRA [Suspect]
     Active Substance: ADALIMUMAB
     Indication: COLITIS ULCERATIVE
     Dosage: UNK
     Dates: start: 20120808
  4. CULTURELLE [Concomitant]
     Active Substance: LACTOBACILLUS RHAMNOSUS
     Dosage: 1 CAPSULES, 1X/DAY
     Route: 048
     Dates: start: 2013
  5. HUMIRA [Suspect]
     Active Substance: ADALIMUMAB
     Dosage: 40 MG, 1 IN 2 WK
     Route: 058
     Dates: start: 20170112, end: 201802

REACTIONS (1)
  - Rectal cancer [Not Recovered/Not Resolved]

NARRATIVE: CASE EVENT DATE: 20190325
